FAERS Safety Report 8453679 (Version 5)
Quarter: 2013Q1

REPORT INFORMATION
  Report Type: Report from Study
  Country: CA (occurrence: CA)
  Receive Date: 20120312
  Receipt Date: 20130221
  Transmission Date: 20140127
  Serious: Yes (Other)
  Sender: FDA-Public Use
  Company Number: CA-ROCHE-1045746

PATIENT
  Age: 46 None
  Sex: Female
  Weight: 63 kg

DRUGS (12)
  1. RITUXIMAB [Suspect]
     Indication: RHEUMATOID ARTHRITIS
     Route: 042
     Dates: start: 20120216, end: 20120907
  2. RITUXIMAB [Suspect]
     Route: 042
     Dates: start: 201203, end: 20120907
  3. DIPHENHYDRAMINE [Concomitant]
     Indication: PREMEDICATION
     Route: 048
     Dates: start: 20120216, end: 20120216
  4. ACETAMINOPHEN [Concomitant]
     Route: 048
     Dates: start: 20120216, end: 20120216
  5. METHYLPREDNISOLONE [Concomitant]
     Indication: PREMEDICATION
     Route: 042
     Dates: start: 20120216, end: 20120216
  6. METHOTREXATE [Concomitant]
     Route: 058
  7. PLAQUENIL [Concomitant]
     Route: 048
  8. FOLIC ACID [Concomitant]
     Route: 065
  9. SYNTHROID [Concomitant]
     Route: 048
  10. SULFASALAZINE [Concomitant]
     Route: 048
  11. IBUPROFEN [Concomitant]
     Route: 065
  12. OMEGA 3 [Concomitant]
     Route: 065

REACTIONS (4)
  - Neutropenia [Recovered/Resolved]
  - Infusion related reaction [Recovered/Resolved]
  - Convulsion [Recovered/Resolved]
  - Weight increased [Not Recovered/Not Resolved]
